FAERS Safety Report 11003620 (Version 1)
Quarter: 2015Q2

REPORT INFORMATION
  Report Type: Report from Study
  Country: BR (occurrence: BR)
  Receive Date: 20150409
  Receipt Date: 20150409
  Transmission Date: 20150821
  Serious: Yes (Life-Threatening)
  Sender: FDA-Public Use
  Company Number: BR-ROCHE-1561541

PATIENT
  Sex: Male
  Weight: 24.02 kg

DRUGS (1)
  1. XOLAIR [Suspect]
     Active Substance: OMALIZUMAB
     Indication: HYPERSENSITIVITY
     Dosage: 2 AMPUOULES
     Route: 065
     Dates: start: 20141214

REACTIONS (1)
  - Anaphylactic shock [Recovered/Resolved]
